FAERS Safety Report 7784995-4 (Version None)
Quarter: 2011Q3

REPORT INFORMATION
  Report Type: 
  Country: None (occurrence: None)
  Receive Date: 20110928
  Receipt Date: 20110921
  Transmission Date: 20111222
  Serious: Yes (Hospitalization, Disabling, Other)
  Sender: FDA-Public Use
  Company Number: PHHO2011TH16025

PATIENT
  Sex: Female
  Weight: 60 kg

DRUGS (2)
  1. SANDOSTATIN LAR [Suspect]
     Indication: PANCREATIC NEUROENDOCRINE TUMOUR
  2. EVEROLIMUS [Suspect]
     Indication: PANCREATIC NEUROENDOCRINE TUMOUR
     Dosage: 10 MG, QD
     Route: 048
     Dates: start: 20110220, end: 20110620

REACTIONS (13)
  - NODULE [None]
  - NEOPLASM PROGRESSION [None]
  - INTERSTITIAL LUNG DISEASE [None]
  - PRODUCTIVE COUGH [None]
  - BRACHIAL PLEXOPATHY [None]
  - DRUG INEFFECTIVE [None]
  - DYSPNOEA [None]
  - NECK MASS [None]
  - PYREXIA [None]
  - COUGH [None]
  - DYSPNOEA AT REST [None]
  - INTERVERTEBRAL DISC DISORDER [None]
  - MUSCULAR WEAKNESS [None]
